FAERS Safety Report 22118348 (Version 2)
Quarter: 2023Q2

REPORT INFORMATION
  Report Type: Spontaneous
  Country: US (occurrence: US)
  Receive Date: 20230321
  Receipt Date: 20230529
  Transmission Date: 20230721
  Serious: No
  Sender: FDA-Public Use
  Company Number: US-009507513-2303USA003237

PATIENT
  Sex: Male

DRUGS (2)
  1. BELSOMRA [Suspect]
     Active Substance: SUVOREXANT
     Indication: Sleep disorder
     Dosage: UNK
     Route: 048
     Dates: start: 20230305
  2. BELSOMRA [Suspect]
     Active Substance: SUVOREXANT
     Dosage: DOSE INCREASED FROM 10 MG TO 20 MG, QD
     Route: 048
     Dates: start: 2023

REACTIONS (4)
  - Drug effect less than expected [Not Recovered/Not Resolved]
  - Insomnia [Unknown]
  - Micturition disorder [Unknown]
  - Abnormal faeces [Unknown]

NARRATIVE: CASE EVENT DATE: 20230101
